FAERS Safety Report 4333855-X (Version None)
Quarter: 2004Q2

REPORT INFORMATION
  Report Type: 
  Country: None (occurrence: None)
  Receive Date: 20040402
  Receipt Date: 20040318
  Transmission Date: 20050107
  Serious: Yes (Death)
  Sender: FDA-Public Use
  Company Number: M04-341-087

PATIENT
  Age: 54 Year
  Sex: Male

DRUGS (2)
  1. VELCADE [Suspect]
     Indication: MULTIPLE MYELOMA
     Dosage: 1.0 MG/M2
  2. MELPHALAN [Concomitant]

REACTIONS (18)
  - ACUTE MYOCARDIAL INFARCTION [None]
  - AMYLOIDOSIS [None]
  - CARDIAC AMYLOIDOSIS [None]
  - CARDIAC STRESS TEST ABNORMAL [None]
  - CARDIO-RESPIRATORY ARREST [None]
  - CONGENITAL ATRIAL SEPTAL DEFECT [None]
  - DIALYSIS [None]
  - DILATATION VENTRICULAR [None]
  - DYSPNOEA EXERTIONAL [None]
  - EJECTION FRACTION DECREASED [None]
  - ELECTROMECHANICAL DISSOCIATION [None]
  - LIVER DISORDER [None]
  - OEDEMA PERIPHERAL [None]
  - PLEURAL EFFUSION [None]
  - PYREXIA [None]
  - RENAL IMPAIRMENT [None]
  - RIGHT VENTRICULAR SYSTOLIC PRESSURE DECREASED [None]
  - TRICUSPID VALVE INCOMPETENCE [None]
